FAERS Safety Report 15348869 (Version 1)
Quarter: 2018Q3

REPORT INFORMATION
  Report Type: Spontaneous
  Country: US (occurrence: US)
  Receive Date: 20180829
  Receipt Date: 20180829
  Transmission Date: 20181010
  Serious: Yes (Life-Threatening, Hospitalization, Disabling, Other)
  Sender: FDA-Public Use
  Company Number: None

PATIENT
  Age: 40 Year
  Sex: Female
  Weight: 83.91 kg

DRUGS (10)
  1. PROGESTERONE. [Concomitant]
     Active Substance: PROGESTERONE
  2. MAGNESIUM [Concomitant]
     Active Substance: MAGNESIUM
  3. PREGENOLONE [Concomitant]
  4. TOPAMAX [Concomitant]
     Active Substance: TOPIRAMATE
  5. REXULTI [Concomitant]
     Active Substance: BREXPIPRAZOLE
  6. MAGNEVIST [Suspect]
     Active Substance: GADOPENTETATE DIMEGLUMINE
  7. WELLBUTRIN [Concomitant]
     Active Substance: BUPROPION HYDROCHLORIDE
  8. VITAMIN D [Concomitant]
     Active Substance: CHOLECALCIFEROL
  9. CYMBALTA [Concomitant]
     Active Substance: DULOXETINE HYDROCHLORIDE
  10. PROBIOTIC [Concomitant]
     Active Substance: PROBIOTICS NOS

REACTIONS (20)
  - Depression [None]
  - Post-traumatic stress disorder [None]
  - Myalgia [None]
  - Asthenia [None]
  - Joint swelling [None]
  - Loss of personal independence in daily activities [None]
  - Hallucination [None]
  - Headache [None]
  - Weight increased [None]
  - Fatigue [None]
  - Pain in extremity [None]
  - Night sweats [None]
  - Blood heavy metal increased [None]
  - Insomnia [None]
  - Arthralgia [None]
  - Tremor [None]
  - Tinnitus [None]
  - Pain [None]
  - Urinary tract infection [None]
  - Paraesthesia [None]

NARRATIVE: CASE EVENT DATE: 20170128
